FAERS Safety Report 24122443 (Version 1)
Quarter: 2024Q3

REPORT INFORMATION
  Report Type: Report from Study
  Country: US (occurrence: US)
  Receive Date: 20240723
  Receipt Date: 20240723
  Transmission Date: 20241017
  Serious: Yes (Other)
  Sender: ABBVIE
  Company Number: US-ABBVIE-5841949

PATIENT
  Sex: Female

DRUGS (1)
  1. HUMIRA [Suspect]
     Active Substance: ADALIMUMAB
     Indication: Uveitis
     Route: 058
     Dates: start: 20210401

REACTIONS (4)
  - Intracranial pressure increased [Recovering/Resolving]
  - Cerebrospinal fluid retention [Recovering/Resolving]
  - Vision blurred [Recovered/Resolved]
  - Dizziness [Recovered/Resolved]
